FAERS Safety Report 18762826 (Version 1)
Quarter: 2021Q1

REPORT INFORMATION
  Report Type: Spontaneous
  Country: US (occurrence: US)
  Receive Date: 20210120
  Receipt Date: 20210120
  Transmission Date: 20210419
  Serious: Yes (Other)
  Sender: FDA-Public Use
  Company Number: US-IPCA LABORATORIES LIMITED-IPC-2021-US-000067

PATIENT

DRUGS (1)
  1. WARFARIN [Suspect]
     Active Substance: WARFARIN
     Indication: DEEP VEIN THROMBOSIS
     Dosage: UNK
     Route: 065

REACTIONS (5)
  - Nephropathy toxic [Recovered/Resolved]
  - Renal tubular necrosis [Recovered/Resolved]
  - Anticoagulation drug level below therapeutic [Recovered/Resolved]
  - Haematuria [Recovered/Resolved]
  - Anticoagulant-related nephropathy [Recovered/Resolved]
